FAERS Safety Report 15253787 (Version 1)
Quarter: 2018Q3

REPORT INFORMATION
  Report Type: Spontaneous
  Country: DE (occurrence: DE)
  Receive Date: 20180808
  Receipt Date: 20180808
  Transmission Date: 20181010
  Serious: Yes (Other)
  Sender: FDA-Public Use
  Company Number: DE-DRREDDYS-GER/GER/18/0102881

PATIENT
  Age: 44 Year
  Sex: Female
  Weight: 58 kg

DRUGS (1)
  1. CIPROFLOXACIN. [Suspect]
     Active Substance: CIPROFLOXACIN
     Indication: URINARY TRACT INFECTION
     Dosage: 250MG PER TABLET, TAKING A TOTAL OF 6 TABLETS IN THE PERIOD 29.05. UNTIL 01.06.2018 (MAX 2 TABLETS P
     Route: 048
     Dates: start: 20180529, end: 20180601

REACTIONS (23)
  - Arthralgia [Unknown]
  - Sensory disturbance [Unknown]
  - Dysaesthesia [Unknown]
  - Gait disturbance [Unknown]
  - Chills [Unknown]
  - Asthenia [Unknown]
  - Coordination abnormal [Unknown]
  - Crying [Unknown]
  - Myalgia [Unknown]
  - Fatigue [Unknown]
  - Joint stiffness [Unknown]
  - Paraesthesia [Unknown]
  - Decreased appetite [Unknown]
  - Arrhythmia [Unknown]
  - Dizziness [Unknown]
  - Bone pain [Unknown]
  - Arthritis [Unknown]
  - Headache [Unknown]
  - Hypoaesthesia [Unknown]
  - Back pain [Unknown]
  - Muscular weakness [Unknown]
  - Tendon pain [Unknown]
  - Sensory level abnormal [Unknown]

NARRATIVE: CASE EVENT DATE: 20180530
